FAERS Safety Report 20131210 (Version 1)
Quarter: 2021Q4

REPORT INFORMATION
  Report Type: Report from Study
  Country: AR (occurrence: AR)
  Receive Date: 20211130
  Receipt Date: 20211130
  Transmission Date: 20220303
  Serious: Yes (Hospitalization, Other)
  Sender: FDA-Public Use
  Company Number: AR-AMGEN-ARGSL2020197387

PATIENT
  Age: 64 Year
  Sex: Female

DRUGS (4)
  1. VECTIBIX [Suspect]
     Active Substance: PANITUMUMAB
     Indication: Colorectal cancer metastatic
     Dosage: EVERY 15 DAYS
     Route: 065
     Dates: start: 20201013
  2. VECTIBIX [Suspect]
     Active Substance: PANITUMUMAB
     Dosage: UNK, Q3WK (EVERY 21 DAYS)
     Route: 065
     Dates: start: 2020
  3. VECTIBIX [Suspect]
     Active Substance: PANITUMUMAB
     Dosage: UNK, EVERY 15 DAYS
     Route: 065
  4. VECTIBIX [Suspect]
     Active Substance: PANITUMUMAB
     Dosage: UNK, UNK
     Route: 065

REACTIONS (17)
  - Pain [Unknown]
  - Vomiting [Unknown]
  - Dehydration [Unknown]
  - Haematochezia [Unknown]
  - Asymptomatic COVID-19 [Unknown]
  - Pain in extremity [Not Recovered/Not Resolved]
  - Dry skin [Unknown]
  - Skin fissures [Not Recovered/Not Resolved]
  - Rash [Not Recovered/Not Resolved]
  - Acne [Not Recovered/Not Resolved]
  - Off label use [Unknown]
  - Accident at home [Unknown]
  - Limb injury [Unknown]
  - Gastrointestinal injury [Unknown]
  - Colon injury [Unknown]
  - Tumour marker increased [Unknown]
  - Abdominal pain upper [Unknown]

NARRATIVE: CASE EVENT DATE: 20200101
